FAERS Safety Report 23908918 (Version 1)
Quarter: 2024Q2

REPORT INFORMATION
  Report Type: Spontaneous
  Country: US (occurrence: US)
  Receive Date: 20240528
  Receipt Date: 20240528
  Transmission Date: 20240716
  Serious: No
  Sender: FDA-Public Use
  Company Number: US-HIKMA PHARMACEUTICALS USA INC.-US-H14001-23-65030

PATIENT

DRUGS (2)
  1. TESTOSTERONE CYPIONATE [Suspect]
     Active Substance: TESTOSTERONE CYPIONATE
     Dosage: 0.7 MILLILITER, WEEKLY, ON MONDAYS
     Route: 065
     Dates: start: 20230828
  2. TESTOSTERONE CYPIONATE [Suspect]
     Active Substance: TESTOSTERONE CYPIONATE
     Indication: Product used for unknown indication
     Dosage: 0.7 MILLILITER, WEEKLY, ON MONDAYS
     Route: 065
     Dates: start: 20230821

REACTIONS (4)
  - Cough [Recovered/Resolved]
  - Psychomotor hyperactivity [Recovered/Resolved]
  - Feeling abnormal [Recovered/Resolved]
  - Tachycardia [Recovered/Resolved]

NARRATIVE: CASE EVENT DATE: 20230821
